FAERS Safety Report 4521305-X (Version None)
Quarter: 2004Q4

REPORT INFORMATION
  Report Type: 
  Country: None (occurrence: None)
  Receive Date: 20041208
  Receipt Date: 20041201
  Transmission Date: 20050328
  Serious: Yes (Other)
  Sender: FDA-Public Use
  Company Number: PHNU2004DE04021

PATIENT
  Age: 80 Year
  Sex: Male

DRUGS (2)
  1. MARCUMAR [Suspect]
  2. VOLTAREN [Suspect]
     Indication: PAIN
     Dates: start: 20041129

REACTIONS (5)
  - ANURIA [None]
  - BLEEDING TIME PROLONGED [None]
  - DRUG INTERACTION [None]
  - OEDEMA [None]
  - OEDEMA PERIPHERAL [None]
